FAERS Safety Report 6057201-9 (Version None)
Quarter: 2009Q1

REPORT INFORMATION
  Report Type: 
  Country: None (occurrence: None)
  Receive Date: 20090129
  Receipt Date: 20080306
  Transmission Date: 20090719
  Serious: No
  Sender: FDA-Public Use
  Company Number: A0715900A

PATIENT

DRUGS (2)
  1. WELLBUTRIN [Suspect]
     Indication: DRUG USE FOR UNKNOWN INDICATION
     Route: 048
  2. ALLI [Concomitant]

REACTIONS (5)
  - ALCOHOL USE [None]
  - ANOREXIA [None]
  - DECREASED APPETITE [None]
  - LOSS OF LIBIDO [None]
  - NAUSEA [None]
